FAERS Safety Report 10236252 (Version 1)
Quarter: 2014Q2

REPORT INFORMATION
  Report Type: Spontaneous
  Country: BR (occurrence: BR)
  Receive Date: 20140613
  Receipt Date: 20140613
  Transmission Date: 20141212
  Serious: Yes (Other)
  Sender: FDA-Public Use
  Company Number: BR-JNJFOC-20140605272

PATIENT
  Age: 7 Year
  Sex: Male
  Weight: 27.6 kg

DRUGS (8)
  1. REMICADE [Suspect]
     Indication: CROHN^S DISEASE
     Route: 042
     Dates: end: 201309
  2. AZATHIOPRINE [Concomitant]
     Route: 065
  3. PREDNISOLONE [Concomitant]
     Route: 065
  4. FOLIC ACID [Concomitant]
     Route: 065
  5. METHOTREXATE [Concomitant]
     Route: 065
  6. CALCIUM CARBONATE [Concomitant]
     Route: 065
  7. VITAMIN A [Concomitant]
     Route: 065
  8. VITAMIN B [Concomitant]
     Route: 065

REACTIONS (2)
  - Lymph node tuberculosis [Recovered/Resolved]
  - Decreased immune responsiveness [Unknown]
